FAERS Safety Report 8956396 (Version 2)
Quarter: 2013Q1

REPORT INFORMATION
  Report Type: Report from Study
  Country: US (occurrence: US)
  Receive Date: 20121210
  Receipt Date: 20130218
  Transmission Date: 20140127
  Serious: Yes (Other)
  Sender: FDA-Public Use
  Company Number: US-GILEAD-2012-0065702

PATIENT
  Age: 43 Year
  Sex: Female

DRUGS (3)
  1. EMTRICITABINE/TENOFOVIR DISOPROXIL FUMARATE [Suspect]
     Indication: HIV INFECTION
     Dosage: 1 DF, QD
     Route: 048
     Dates: start: 20060222
  2. ATAZANAVIR [Concomitant]
     Indication: HIV INFECTION
     Dosage: 300 MG, QD
     Route: 048
     Dates: start: 20070123
  3. RITONAVIR [Concomitant]
     Indication: MATERNAL EXPOSURE DURING PREGNANCY
     Dosage: 100 MG, QD
     Route: 048
     Dates: start: 20070123

REACTIONS (2)
  - Abortion spontaneous [Recovered/Resolved]
  - Blighted ovum [Recovered/Resolved]
